FAERS Safety Report 10347504 (Version 1)
Quarter: 2014Q3

REPORT INFORMATION
  Report Type: Spontaneous
  Country: GB (occurrence: GB)
  Receive Date: 20140729
  Receipt Date: 20140729
  Transmission Date: 20150326
  Serious: Yes (Disabling, Other)
  Sender: FDA-Public Use
  Company Number: GB-TEVA-495299ISR

PATIENT
  Age: 52 Year
  Sex: Female
  Weight: 92.07 kg

DRUGS (10)
  1. ASPIRIN. [Concomitant]
     Active Substance: ASPIRIN
  2. COCODAMOL [Concomitant]
     Active Substance: ACETAMINOPHEN\CODEINE PHOSPHATE
     Dosage: 8MG/500MG
  3. BISOPROLOL [Concomitant]
     Active Substance: BISOPROLOL
  4. NITROMIN [Concomitant]
  5. ATORVASTATIN [Suspect]
     Active Substance: ATORVASTATIN
     Dosage: 80MG THEN 40MG A YEAR LATER NOW ON 20MG
     Route: 048
     Dates: start: 20111223
  6. LITOZIN [Concomitant]
  7. OMEPRAZOLE. [Concomitant]
     Active Substance: OMEPRAZOLE
     Dosage: 80 MILLIGRAM DAILY;
  8. GAVISCON [Concomitant]
     Active Substance: ALUMINUM HYDROXIDE\MAGNESIUM CARBONATE
  9. RAMIPRIL. [Concomitant]
     Active Substance: RAMIPRIL
  10. VENTOLIN [Concomitant]
     Active Substance: ALBUTEROL SULFATE
     Route: 055

REACTIONS (3)
  - Contusion [Recovered/Resolved with Sequelae]
  - Myalgia [Recovered/Resolved with Sequelae]
  - Abdominal pain [Recovered/Resolved with Sequelae]

NARRATIVE: CASE EVENT DATE: 201203
